FAERS Safety Report 8762161 (Version 1)
Quarter: 2012Q4

REPORT INFORMATION
  Report Type: 
  Country: IT (occurrence: IT)
  Receive Date: 20120830
  Receipt Date: 20120830
  Transmission Date: 20130627
  Serious: Yes (Hospitalization)
  Sender: FDA-Public Use
  Company Number: IT-TEVA-355708ISR

PATIENT
  Sex: Male

DRUGS (2)
  1. FLUOROURACILE [Suspect]
  2. OXALIPLATINO [Suspect]

REACTIONS (3)
  - Apnoea [Recovered/Resolved]
  - Vomiting [Recovered/Resolved]
  - Hiccups [Recovered/Resolved]
